FAERS Safety Report 23751881 (Version 5)
Quarter: 2024Q2

REPORT INFORMATION
  Report Type: Report from Study
  Country: CH (occurrence: CH)
  Receive Date: 20240417
  Receipt Date: 20240525
  Transmission Date: 20240716
  Serious: Yes (Death, Hospitalization, Other)
  Sender: FDA-Public Use
  Company Number: CH-ABBVIE-5717711

PATIENT
  Age: 80 Year
  Sex: Male

DRUGS (3)
  1. CARBIDOPA\LEVODOPA [Suspect]
     Active Substance: CARBIDOPA\LEVODOPA
     Indication: Parkinson^s disease
     Dosage: MD: 5.5 ML, CRD: 4.5 ML/H,  ED: 2.0 ML?FREQUENCY TEXT: 16H THERAPY?LAST ADMIN DATE: APR 2024
     Route: 050
     Dates: start: 20240409
  2. CARBIDOPA\LEVODOPA [Suspect]
     Active Substance: CARBIDOPA\LEVODOPA
     Dosage: MD: 5.5 ML, CRD: 4.5 ML/H,  ED: 2.0 ML
     Route: 050
     Dates: start: 202404, end: 20240422
  3. CARBIDOPA\LEVODOPA [Suspect]
     Active Substance: CARBIDOPA\LEVODOPA
     Dosage: MD: 5.5 ML, CRD: 4.5 ML/H,  ED: 2.0 ML?FREQUENCY TEXT: 16H THERAPY?LAST ADMIN DATE WAS APR 2024.
     Route: 050
     Dates: start: 20240422

REACTIONS (11)
  - Parkinson^s disease [Fatal]
  - Device occlusion [Recovered/Resolved]
  - Somnolence [Recovered/Resolved]
  - Off label use [Recovered/Resolved]
  - Muscle contracture [Unknown]
  - Unresponsive to stimuli [Not Recovered/Not Resolved]
  - Enteral nutrition [Not Recovered/Not Resolved]
  - Muscle rigidity [Not Recovered/Not Resolved]
  - Hallucination [Not Recovered/Not Resolved]
  - Pneumonia aspiration [Not Recovered/Not Resolved]
  - Disorientation [Not Recovered/Not Resolved]

NARRATIVE: CASE EVENT DATE: 20240401
